FAERS Safety Report 18580124 (Version 1)
Quarter: 2020Q4

REPORT INFORMATION
  Report Type: Report from Study
  Country: ES (occurrence: ES)
  Receive Date: 20201204
  Receipt Date: 20201204
  Transmission Date: 20210114
  Serious: Yes (Death, Other)
  Sender: FDA-Public Use
  Company Number: ES-VIIV HEALTHCARE LIMITED-ES2020GSK207736

PATIENT
  Age: 68 Year
  Sex: Male

DRUGS (1)
  1. MARAVIROC [Suspect]
     Active Substance: MARAVIROC
     Indication: COVID-19
     Dosage: 300 MG, BID
     Dates: start: 20201016, end: 20201020

REACTIONS (3)
  - Acute respiratory distress syndrome [Fatal]
  - Pneumonia pseudomonal [Fatal]
  - Septic shock [Fatal]

NARRATIVE: CASE EVENT DATE: 20201017
